FAERS Safety Report 5801379-6 (Version None)
Quarter: 2008Q3

REPORT INFORMATION
  Report Type: 
  Country: None (occurrence: None)
  Receive Date: 20080703
  Receipt Date: 20080703
  Transmission Date: 20090109
  Serious: Yes (Other)
  Sender: FDA-Public Use
  Company Number: None

PATIENT
  Age: 48 Year
  Sex: Female
  Weight: 75.7507 kg

DRUGS (1)
  1. OXYBUTYNIN [Suspect]
     Indication: POLLAKIURIA
     Dosage: 10MG PO
     Route: 048

REACTIONS (1)
  - HEADACHE [None]
